FAERS Safety Report 7756399-1 (Version None)
Quarter: 2011Q3

REPORT INFORMATION
  Report Type: 
  Country: None (occurrence: None)
  Receive Date: 20110916
  Receipt Date: 20110829
  Transmission Date: 20111222
  Serious: Yes (Other)
  Sender: FDA-Public Use
  Company Number: JP-ABBOTT-11P-087-0853204-00

PATIENT
  Sex: Female

DRUGS (6)
  1. HUMIRA [Suspect]
     Dates: start: 20110323
  2. HUMIRA [Suspect]
     Dates: start: 20110309, end: 20110309
  3. LOPERAMIDE HCL [Concomitant]
     Indication: CROHN'S DISEASE
     Route: 048
  4. ACETAMINOPHEN [Concomitant]
     Indication: NASOPHARYNGITIS
     Route: 048
  5. CLOSTRIDIUM BUTYRICUM [Concomitant]
     Indication: CROHN'S DISEASE
     Route: 048
  6. HUMIRA [Suspect]
     Indication: CROHN'S DISEASE
     Route: 058
     Dates: start: 20110222, end: 20110222

REACTIONS (4)
  - CROHN'S DISEASE [None]
  - MATERNAL EXPOSURE DURING PREGNANCY [None]
  - URTICARIA [None]
  - PREGNANCY [None]
